FAERS Safety Report 23215482 (Version 2)
Quarter: 2023Q4

REPORT INFORMATION
  Report Type: Spontaneous
  Country: EU (occurrence: EU)
  Receive Date: 20231122
  Receipt Date: 20231213
  Transmission Date: 20240109
  Serious: No
  Sender: FDA-Public Use
  Company Number: None

PATIENT
  Age: 58 Year
  Sex: Male
  Weight: 83 kg

DRUGS (1)
  1. FIBRYGA [Suspect]
     Active Substance: FIBRINOGEN HUMAN
     Indication: Haemorrhage
     Dosage: MASKED
     Route: 042
     Dates: start: 20231108, end: 20231108

REACTIONS (2)
  - Treatment delayed [Not Recovered/Not Resolved]
  - Product reconstitution quality issue [Not Recovered/Not Resolved]

NARRATIVE: CASE EVENT DATE: 20231108
